FAERS Safety Report 9361855 (Version 4)
Quarter: 2013Q4

REPORT INFORMATION
  Report Type: Spontaneous
  Country: AU (occurrence: AU)
  Receive Date: 20130621
  Receipt Date: 20131008
  Transmission Date: 20140711
  Serious: Yes (Death, Life-Threatening, Hospitalization)
  Sender: FDA-Public Use
  Company Number: AU-ACTELION-A-CH2013-84490

PATIENT
  Age: 74 Year
  Sex: Female
  Weight: 96 kg

DRUGS (14)
  1. TRACLEER [Suspect]
     Indication: PULMONARY ARTERIAL HYPERTENSION
     Dosage: 125 MG, BID
     Route: 048
     Dates: start: 20110813, end: 20130926
  2. TRACLEER [Suspect]
     Dosage: 62.5 MG, BID
     Route: 048
     Dates: start: 20110714, end: 20110813
  3. ATORVASTATIN CALCIUM [Concomitant]
     Dosage: 40 MG, UNK
  4. COLECALCIFEROL [Concomitant]
     Dosage: 25 ?G, UNK
  5. FUROSEMIDE [Concomitant]
     Dosage: 40 UNK, UNK
  6. GLICLAZIDE [Concomitant]
     Dosage: 80 MG, UNK
  7. LANTUS [Concomitant]
  8. METFORMIN [Concomitant]
     Dosage: 500 MG, UNK
  9. OMEPRAZOLE [Concomitant]
     Dosage: 20 UNK, UNK
  10. PARACETAMOL [Concomitant]
     Dosage: 500 MG, UNK
  11. OXYCODONE [Concomitant]
     Dosage: 5 MG, UNK
  12. OXYGEN [Concomitant]
  13. GLYCERYL TRINITRAT [Concomitant]
     Dosage: 400 ?G, UNK
  14. TEMAZEPAM [Concomitant]
     Dosage: 10 MG, UNK

REACTIONS (8)
  - Colon cancer [Fatal]
  - Rectal adenocarcinoma [Not Recovered/Not Resolved]
  - Faecal incontinence [Not Recovered/Not Resolved]
  - Rectal haemorrhage [Not Recovered/Not Resolved]
  - Iron deficiency anaemia [Not Recovered/Not Resolved]
  - Liver function test abnormal [Unknown]
  - Blood alkaline phosphatase increased [Unknown]
  - Gamma-glutamyltransferase increased [Unknown]
